FAERS Safety Report 5571835-7 (Version None)
Quarter: 2007Q4

REPORT INFORMATION
  Report Type: 
  Country: None (occurrence: None)
  Receive Date: 20071221
  Receipt Date: 20071221
  Transmission Date: 20080405
  Serious: Yes (Hospitalization, Other)
  Sender: FDA-Public Use
  Company Number: D0055143A

PATIENT
  Age: 27 Year
  Sex: Male
  Weight: 65 kg

DRUGS (3)
  1. SUMATRIPTAN SUCCINATE [Suspect]
     Indication: CLUSTER HEADACHE
     Route: 058
     Dates: start: 20051001
  2. VERAPAMIL [Suspect]
     Dosage: 80MG THREE TIMES PER DAY
     Route: 048
     Dates: start: 20051001
  3. ASCOTOP [Concomitant]
     Indication: CLUSTER HEADACHE
     Route: 045
     Dates: start: 20071001

REACTIONS (2)
  - DRUG ABUSE [None]
  - DRUG INTERACTION [None]
